FAERS Safety Report 9358607 (Version 1)
Quarter: 2013Q2

REPORT INFORMATION
  Report Type: Spontaneous
  Country: US (occurrence: US)
  Receive Date: 20130620
  Receipt Date: 20130620
  Transmission Date: 20140414
  Serious: Yes (Hospitalization)
  Sender: FDA-Public Use
  Company Number: US-GLAXOSMITHKLINE-A0985002A

PATIENT
  Sex: Female

DRUGS (9)
  1. AVANDIA [Suspect]
     Indication: DIABETES MELLITUS
     Route: 048
  2. ACCUPRIL [Concomitant]
  3. K DUR [Concomitant]
  4. BUMEX [Concomitant]
  5. PROTONIX [Concomitant]
  6. NEPHROCAPS [Concomitant]
  7. PHOSLO [Concomitant]
  8. LABETALOL [Concomitant]
  9. HYDROCHLOROTHIAZIDE [Concomitant]

REACTIONS (5)
  - Coronary artery disease [Unknown]
  - Ischaemia [Unknown]
  - Cardiac failure [Unknown]
  - Ischaemic cardiomyopathy [Unknown]
  - Cardiac disorder [Unknown]
